FAERS Safety Report 7381560-8 (Version None)
Quarter: 2011Q1

REPORT INFORMATION
  Report Type: 
  Country: None (occurrence: None)
  Receive Date: 20110329
  Receipt Date: 20110320
  Transmission Date: 20110831
  Serious: Yes (Hospitalization)
  Sender: FDA-Public Use
  Company Number: IT-JNJFOC-20110309604

PATIENT
  Sex: Male

DRUGS (1)
  1. ANTALFEBAL BAMBINI 2% [Suspect]
     Indication: GASTROENTERITIS VIRAL
     Route: 048

REACTIONS (2)
  - HAEMATEMESIS [None]
  - DEHYDRATION [None]
